FAERS Safety Report 4389682-0 (Version None)
Quarter: 2004Q2

REPORT INFORMATION
  Report Type: 
  Country: None (occurrence: None)
  Receive Date: 20040630
  Receipt Date: 20040614
  Transmission Date: 20050107
  Serious: Yes (Death)
  Sender: FDA-Public Use
  Company Number: 04H-062-0264199-00

PATIENT
  Age: 68 Year
  Sex: Female

DRUGS (1)
  1. HEPARIN SODIUM [Suspect]
     Dosage: 5000 IU, 3 TIMES DAILY,

REACTIONS (14)
  - AORTIC THROMBOSIS [None]
  - ARTERIAL THROMBOSIS [None]
  - ARTERIAL THROMBOSIS LIMB [None]
  - DILATATION ATRIAL [None]
  - DILATATION VENTRICULAR [None]
  - HEPARIN-INDUCED THROMBOCYTOPENIA [None]
  - INTRACARDIAC THROMBUS [None]
  - PARAESTHESIA [None]
  - PHLEBOTHROMBOSIS [None]
  - PULMONARY ARTERY THROMBOSIS [None]
  - RESPIRATORY FAILURE [None]
  - SHOCK [None]
  - THROMBOSIS [None]
  - VENOUS OCCLUSION [None]
